FAERS Safety Report 17773138 (Version 2)
Quarter: 2020Q2

REPORT INFORMATION
  Report Type: Report from Study
  Country: None (occurrence: CH)
  Receive Date: 20200513
  Receipt Date: 20200526
  Transmission Date: 20200714
  Serious: Yes (Hospitalization, Other)
  Sender: FDA-Public Use
  Company Number: CH-ABBVIE-20K-151-3388430-00

PATIENT
  Age: 72 Year
  Sex: Male

DRUGS (4)
  1. DUODOPA [Suspect]
     Active Substance: CARBIDOPA\LEVODOPA
     Indication: PARKINSON^S DISEASE
     Route: 050
     Dates: start: 20101018, end: 20171115
  2. DUODOPA [Suspect]
     Active Substance: CARBIDOPA\LEVODOPA
     Dosage: MD: 3 ML, CRD: 3.4 ML/H, CRN : 3.4 ML/H, ED: 3 ML 24 H THERAPY
     Route: 050
     Dates: start: 20191108, end: 20200509
  3. DUODOPA [Suspect]
     Active Substance: CARBIDOPA\LEVODOPA
     Dosage: MD: 3 ML,CRD: 3.4 ML/H,CRN: 3.4 ML/H,ED: 0 ML; 24 H THERAPY?DOSE DECREASED.
     Route: 050
     Dates: start: 20200509
  4. DUODOPA [Suspect]
     Active Substance: CARBIDOPA\LEVODOPA
     Dosage: MD: 3 ML, CRD: 4.4 ML/H, CRN: 3 ML/H, ED: 3 ML 24 H THERAPY
     Route: 050
     Dates: start: 20171115, end: 20191108

REACTIONS (5)
  - General physical health deterioration [Not Recovered/Not Resolved]
  - Parkinson^s disease [Unknown]
  - Hallucination [Not Recovered/Not Resolved]
  - Incorrect dose administered [Unknown]
  - Fall [Unknown]

NARRATIVE: CASE EVENT DATE: 202004
